FAERS Safety Report 22656692 (Version 1)
Quarter: 2023Q2

REPORT INFORMATION
  Report Type: Spontaneous
  Country: GB (occurrence: GB)
  Receive Date: 20230630
  Receipt Date: 20230630
  Transmission Date: 20230721
  Serious: Yes (Other)
  Sender: FDA-Public Use
  Company Number: None

PATIENT
  Age: 69 Year
  Sex: Male

DRUGS (10)
  1. AMOXICILLIN\CLAVULANATE POTASSIUM [Suspect]
     Active Substance: AMOXICILLIN\CLAVULANATE POTASSIUM
     Indication: Product used for unknown indication
     Dosage: 1200 MG, TID FOR 5 DAYS
     Route: 042
     Dates: start: 20230330
  2. POTASSIUM CHLORIDE [Concomitant]
     Active Substance: POTASSIUM CHLORIDE
     Indication: Product used for unknown indication
     Dosage: 1000 ML (40MMOL IN 1,000ML)
     Route: 042
     Dates: start: 20230619, end: 20230620
  3. SODIUM CHLORIDE [Concomitant]
     Active Substance: SODIUM CHLORIDE
     Indication: Product used for unknown indication
     Dosage: 1000 ML
     Route: 042
     Dates: start: 20230619, end: 20230620
  4. PLASMA-LYTE 148 [Concomitant]
     Active Substance: MAGNESIUM CHLORIDE\POTASSIUM CHLORIDE\SODIUM ACETATE\SODIUM CHLORIDE\SODIUM GLUCONATE
     Indication: Product used for unknown indication
     Dosage: 1,000 ML INTRAVENOUS FOR 1 BAG(S)
     Route: 042
     Dates: start: 20230619, end: 20230620
  5. CYCLIZINE [Concomitant]
     Active Substance: CYCLIZINE
     Indication: Product used for unknown indication
     Dosage: 50 MG, TID
     Route: 042
     Dates: start: 20230331, end: 20230403
  6. DALTEPARIN [Concomitant]
     Active Substance: DALTEPARIN
     Indication: Thrombosis prophylaxis
     Dosage: 5000 IU, QD (EVENING)
     Route: 058
     Dates: start: 20230331, end: 20230403
  7. FENTANYL [Concomitant]
     Active Substance: FENTANYL
     Indication: Product used for unknown indication
     Dosage: 10 MICROGRAM TO 20 MICROGRAM, PRN
     Route: 042
     Dates: start: 20230331, end: 20230403
  8. MORPHINE [Concomitant]
     Active Substance: MORPHINE
     Indication: Product used for unknown indication
     Dosage: 1MG TO 2MG EVERY FIVE MINUTES
     Route: 042
     Dates: start: 20230331, end: 20230403
  9. ONDANSETRON [Concomitant]
     Active Substance: ONDANSETRON
     Indication: Product used for unknown indication
     Dosage: 4 MG, TID
     Route: 042
     Dates: start: 20230331
  10. ACETAMINOPHEN [Concomitant]
     Active Substance: ACETAMINOPHEN
     Indication: Product used for unknown indication
     Dosage: 1 G, QID
     Route: 042
     Dates: start: 20230330

REACTIONS (1)
  - Wheezing [Recovering/Resolving]
